FAERS Safety Report 24739020 (Version 3)
Quarter: 2025Q1

REPORT INFORMATION
  Report Type: Spontaneous
  Country: US (occurrence: US)
  Receive Date: 20241216
  Receipt Date: 20250319
  Transmission Date: 20250409
  Serious: No
  Sender: ELI LILLY AND COMPANY
  Company Number: US-ELI_LILLY_AND_COMPANY-US202412009901

PATIENT
  Age: 57 Year
  Sex: Female

DRUGS (1)
  1. VERZENIO [Suspect]
     Active Substance: ABEMACICLIB
     Indication: Breast cancer
     Dosage: 1 TABLET, BID
     Route: 048
     Dates: start: 20241122

REACTIONS (4)
  - Tumour marker increased [Unknown]
  - Blood creatinine abnormal [Unknown]
  - Cough [Unknown]
  - Diarrhoea [Unknown]
